FAERS Safety Report 8138516-7 (Version None)
Quarter: 2012Q1

REPORT INFORMATION
  Report Type: 
  Country: None (occurrence: None)
  Receive Date: 20120215
  Receipt Date: 20120130
  Transmission Date: 20120608
  Serious: Yes (Other)
  Sender: FDA-Public Use
  Company Number: US-ROCHE-1037696

PATIENT
  Sex: Female

DRUGS (5)
  1. RITUXAN [Suspect]
     Indication: CRYOGLOBULINAEMIA
     Route: 042
  2. RITUXAN [Suspect]
     Indication: VASCULITIS
  3. INTERFERON ALFA [Suspect]
     Indication: HEPATITIS C
  4. PEGASYS [Suspect]
     Indication: HEPATITIS C
     Route: 058
     Dates: end: 20110801
  5. GABAPENTIN [Concomitant]
     Indication: NEUROPATHY PERIPHERAL

REACTIONS (10)
  - LIMB INJURY [None]
  - FATIGUE [None]
  - INFLUENZA [None]
  - COLITIS ISCHAEMIC [None]
  - ANAEMIA [None]
  - HEPATITIS C [None]
  - HAEMATOCHEZIA [None]
  - PYREXIA [None]
  - ILL-DEFINED DISORDER [None]
  - SKIN ULCER [None]
